FAERS Safety Report 18208680 (Version 3)
Quarter: 2020Q4

REPORT INFORMATION
  Report Type: Report from Study
  Country: None (occurrence: US)
  Receive Date: 20200828
  Receipt Date: 20201202
  Transmission Date: 20210113
  Serious: Yes (Hospitalization, Other)
  Sender: FDA-Public Use
  Company Number: US-ABBVIE-20K-163-3444420-00

PATIENT
  Age: 55 Year
  Sex: Female

DRUGS (4)
  1. HUMIRA [Suspect]
     Active Substance: ADALIMUMAB
     Route: 058
     Dates: start: 20200529
  2. HUMIRA [Suspect]
     Active Substance: ADALIMUMAB
     Indication: CROHN^S DISEASE
     Dosage: DAY 1
     Route: 058
     Dates: start: 202005, end: 202005
  3. OXICAM [Suspect]
     Active Substance: PIROXICAM
     Indication: PRODUCT USED FOR UNKNOWN INDICATION
     Route: 065
  4. HUMIRA [Suspect]
     Active Substance: ADALIMUMAB
     Dosage: DAY 15
     Route: 058
     Dates: start: 2020, end: 2020

REACTIONS (35)
  - Loss of personal independence in daily activities [Recovering/Resolving]
  - Asthenia [Unknown]
  - Malaise [Not Recovered/Not Resolved]
  - Chills [Unknown]
  - Pain [Unknown]
  - Fatigue [Recovering/Resolving]
  - Anxiety [Recovering/Resolving]
  - Tongue discomfort [Unknown]
  - Gastroenteritis viral [Unknown]
  - Depressed mood [Not Recovered/Not Resolved]
  - Insomnia [Recovering/Resolving]
  - Haematochezia [Recovering/Resolving]
  - Faeces soft [Unknown]
  - Chest pain [Unknown]
  - Inflammation [Unknown]
  - Decreased appetite [Not Recovered/Not Resolved]
  - Cough [Recovered/Resolved]
  - Feeling cold [Unknown]
  - Abdominal pain upper [Not Recovered/Not Resolved]
  - Diarrhoea [Not Recovered/Not Resolved]
  - Nausea [Not Recovered/Not Resolved]
  - Constipation [Not Recovered/Not Resolved]
  - Abdominal pain [Not Recovered/Not Resolved]
  - Chills [Recovered/Resolved]
  - Abnormal faeces [Not Recovered/Not Resolved]
  - Pyrexia [Unknown]
  - Arthritis [Unknown]
  - Vomiting [Not Recovered/Not Resolved]
  - Rectal haemorrhage [Not Recovered/Not Resolved]
  - Weight decreased [Unknown]
  - Dyspnoea [Recovered/Resolved]
  - Muscle spasms [Recovered/Resolved]
  - Pyrexia [Recovered/Resolved]
  - Nasal herpes [Unknown]
  - Pain in extremity [Unknown]

NARRATIVE: CASE EVENT DATE: 2020
